FAERS Safety Report 11882762 (Version 2)
Quarter: 2016Q1

REPORT INFORMATION
  Report Type: Report from Study
  Country: US (occurrence: US)
  Receive Date: 20151231
  Receipt Date: 20160129
  Transmission Date: 20160526
  Serious: Yes (Hospitalization)
  Sender: FDA-Public Use
  Company Number: US-KADMON PHARMACEUTICALS, LLC-KAD201512-004654

PATIENT
  Age: 51 Year
  Sex: Female

DRUGS (22)
  1. KEPPRA [Concomitant]
     Active Substance: LEVETIRACETAM
  2. LEVOTHYROXINE (NON-ABBVIE) [Concomitant]
  3. AMBIEN [Concomitant]
     Active Substance: ZOLPIDEM TARTRATE
  4. CALCIUM CARBONATE/VITAMIN D (NON-ABBVIE) [Concomitant]
  5. PLAVIX [Concomitant]
     Active Substance: CLOPIDOGREL BISULFATE
  6. LIDOCAINE (NON-ABBVIE) [Concomitant]
  7. SKELAXIN (NON-ABBVIE) [Concomitant]
  8. ZOLOFT [Concomitant]
     Active Substance: SERTRALINE HYDROCHLORIDE
  9. COMBIVENT [Concomitant]
     Active Substance: ALBUTEROL SULFATE\IPRATROPIUM BROMIDE
  10. REMERON [Concomitant]
     Active Substance: MIRTAZAPINE
  11. MAXALT [Concomitant]
     Active Substance: RIZATRIPTAN BENZOATE
  12. VIEKIRA PAK [Suspect]
     Active Substance: DASABUVIR\OMBITASVIR\PARITAPREVIR\RITONAVIR
     Indication: HEPATITIS C
     Dosage: TABLET
     Route: 048
     Dates: start: 20151202, end: 20151209
  13. GABAPENTIN. [Concomitant]
     Active Substance: GABAPENTIN
  14. TOPAMAX [Concomitant]
     Active Substance: TOPIRAMATE
  15. ZONEGRAN [Concomitant]
     Active Substance: ZONISAMIDE
  16. RIBAVIRIN. [Suspect]
     Active Substance: RIBAVIRIN
     Indication: HEPATITIS C
     Dosage: TABLET
     Route: 048
     Dates: start: 20151202, end: 20151211
  17. ASPIRIN (NON-ABBVIE) [Concomitant]
  18. LIPITOR [Concomitant]
     Active Substance: ATORVASTATIN CALCIUM
  19. OXYCODONE (NON-ABBVIE) [Concomitant]
  20. VITAMIN B [Concomitant]
     Active Substance: VITAMIN B
  21. ALBUTEROL (NON-ABBVIE) [Concomitant]
  22. VOLTAREN GEL (NON-ABBVIE) [Concomitant]

REACTIONS (12)
  - Vomiting [Unknown]
  - Retching [Recovered/Resolved]
  - Dehydration [Recovered/Resolved]
  - Confusional state [Recovered/Resolved]
  - Headache [Unknown]
  - Blood glucose increased [Recovered/Resolved]
  - Decreased appetite [Unknown]
  - Prerenal failure [Unknown]
  - Dysarthria [Recovered/Resolved]
  - Dizziness [Unknown]
  - Weight decreased [Unknown]
  - Nausea [Recovered/Resolved]

NARRATIVE: CASE EVENT DATE: 201512
